FAERS Safety Report 19190363 (Version 1)
Quarter: 2021Q2

REPORT INFORMATION
  Report Type: Spontaneous
  Country: NO (occurrence: NO)
  Receive Date: 20210428
  Receipt Date: 20210428
  Transmission Date: 20210717
  Serious: Yes (Death, Congenital Anomaly)
  Sender: FDA-Public Use
  Company Number: NVSC2021NO094156

PATIENT
  Sex: Male

DRUGS (4)
  1. RITALIN [Suspect]
     Active Substance: METHYLPHENIDATE HYDROCHLORIDE
     Indication: ATTENTION DEFICIT HYPERACTIVITY DISORDER
     Dosage: 70 MG, QD
     Route: 064
     Dates: start: 2010
  2. LITHIONIT [Suspect]
     Active Substance: LITHIUM SULFATE
     Indication: BIPOLAR II DISORDER
     Dosage: 208 MG, Q12H
     Route: 064
     Dates: start: 2010, end: 20200922
  3. LITHIONIT [Suspect]
     Active Substance: LITHIUM SULFATE
     Indication: FOETAL EXPOSURE DURING PREGNANCY
  4. RITALIN [Suspect]
     Active Substance: METHYLPHENIDATE HYDROCHLORIDE
     Indication: FOETAL EXPOSURE DURING PREGNANCY

REACTIONS (2)
  - Fallot^s tetralogy [Fatal]
  - Foetal exposure during pregnancy [Fatal]

NARRATIVE: CASE EVENT DATE: 2020
